FAERS Safety Report 22601362 (Version 1)
Quarter: 2023Q2

REPORT INFORMATION
  Report Type: Spontaneous
  Country: US (occurrence: US)
  Receive Date: 20230614
  Receipt Date: 20230614
  Transmission Date: 20230722
  Serious: No
  Sender: FDA-Public Use
  Company Number: US-PFIZER INC-202300218387

PATIENT
  Age: 38 Year
  Sex: Female

DRUGS (10)
  1. XELJANZ [Suspect]
     Active Substance: TOFACITINIB CITRATE
     Dosage: 10 MG, 2X/DAY
     Route: 048
     Dates: start: 202012, end: 202304
  2. METHYLPHENIDATE [Concomitant]
     Active Substance: METHYLPHENIDATE
  3. ENTYVIO [Concomitant]
     Active Substance: VEDOLIZUMAB
  4. EPIDIOLEX [Concomitant]
     Active Substance: CANNABIDIOL
  5. FISH OIL [Concomitant]
     Active Substance: FISH OIL
  6. IRON [Concomitant]
     Active Substance: IRON
  7. CALCIUM [Concomitant]
     Active Substance: CALCIUM
  8. VITAMIN B COMPLEX [Concomitant]
     Active Substance: CYANOCOBALAMIN\DEXPANTHENOL\NIACINAMIDE\PYRIDOXINE HYDROCHLORIDE\RIBOFLAVIN 5^-PHOSPHATE SODIUM\THIA
  9. VITAMIN D3 [Concomitant]
     Active Substance: CHOLECALCIFEROL
  10. VITAMINS NOS [Concomitant]
     Active Substance: VITAMINS

REACTIONS (4)
  - Drug ineffective [Unknown]
  - Condition aggravated [Unknown]
  - Colonoscopy abnormal [Unknown]
  - Off label use [Unknown]

NARRATIVE: CASE EVENT DATE: 20201201
